FAERS Safety Report 16093261 (Version 4)
Quarter: 2019Q3

REPORT INFORMATION
  Report Type: Report from Study
  Country: US (occurrence: US)
  Receive Date: 20190320
  Receipt Date: 20190703
  Transmission Date: 20191004
  Serious: No
  Sender: FDA-Public Use
  Company Number: US-ALEXION PHARMACEUTICALS INC.-A201904001

PATIENT
  Sex: Female

DRUGS (3)
  1. IRON [Concomitant]
     Active Substance: IRON
     Indication: PRODUCT USED FOR UNKNOWN INDICATION
     Dosage: UNK
     Route: 042
     Dates: start: 20190309
  2. SOLIRIS [Suspect]
     Active Substance: ECULIZUMAB
     Indication: MYASTHENIA GRAVIS
     Route: 065
  3. IMMUNOGLOBULIN                     /00025201/ [Concomitant]
     Active Substance: HUMAN IMMUNOGLOBULIN G
     Indication: PRODUCT USED FOR UNKNOWN INDICATION
     Dosage: UNK
     Route: 042
     Dates: start: 20190309

REACTIONS (12)
  - Diplopia [Unknown]
  - Malaise [Unknown]
  - Eating disorder symptom [Unknown]
  - Pyrexia [Unknown]
  - Vaginal haemorrhage [Recovered/Resolved]
  - Vision blurred [Unknown]
  - Fatigue [Unknown]
  - Abdominal discomfort [Unknown]
  - Haematoma [Not Recovered/Not Resolved]
  - Impaired healing [Unknown]
  - Anaemia [Unknown]
  - Abdominal pain [Recovered/Resolved]

NARRATIVE: CASE EVENT DATE: 20190309
